FAERS Safety Report 17359152 (Version 1)
Quarter: 2020Q1

REPORT INFORMATION
  Report Type: Spontaneous
  Country: GB (occurrence: GB)
  Receive Date: 20200203
  Receipt Date: 20200203
  Transmission Date: 20200409
  Serious: Yes (Hospitalization)
  Sender: FDA-Public Use
  Company Number: GB-TEVA-2020-GB-1177416

PATIENT
  Age: 67 Year
  Sex: Female

DRUGS (10)
  1. METHOTREXATE. [Concomitant]
     Active Substance: METHOTREXATE
  2. CALCICHEW D3 [Concomitant]
     Active Substance: CALCIUM\CHOLECALCIFEROL
  3. INDOMETACIN [Concomitant]
     Active Substance: INDOMETHACIN
     Dosage: LONG TERM., 150 MG
  4. FLUCLOXACILLIN [Concomitant]
     Active Substance: FLUCLOXACILLIN
  5. ATORVASTATIN [Concomitant]
     Active Substance: ATORVASTATIN
  6. NAPROXEN. [Suspect]
     Active Substance: NAPROXEN
     Indication: KNEE ARTHROPLASTY
     Dates: start: 201905
  7. OMEPRAZOLE. [Concomitant]
     Active Substance: OMEPRAZOLE
  8. SULFASALAZINE. [Concomitant]
     Active Substance: SULFASALAZINE
  9. FOLIC ACID. [Concomitant]
     Active Substance: FOLIC ACID
  10. PARACETAMOL [Concomitant]
     Active Substance: ACETAMINOPHEN

REACTIONS (1)
  - Acute kidney injury [Unknown]
